FAERS Safety Report 20937553 (Version 1)
Quarter: 2022Q2

REPORT INFORMATION
  Report Type: Spontaneous
  Country: US (occurrence: US)
  Receive Date: 20220609
  Receipt Date: 20220609
  Transmission Date: 20220721
  Serious: No
  Sender: FDA-Public Use
  Company Number: US-HETERO-HET2022US01259

PATIENT
  Age: 10 Year
  Sex: Male
  Weight: 29 kg

DRUGS (2)
  1. OSELTAMIVIR [Suspect]
     Active Substance: OSELTAMIVIR
     Indication: Influenza
     Dosage: 30 MG, BID
     Route: 048
     Dates: start: 20220606, end: 20220606
  2. TYLENOL                            /00020001/ [Concomitant]
     Indication: Pyrexia
     Dosage: UNK, BID
     Route: 065

REACTIONS (2)
  - Nausea [Unknown]
  - Vomiting [Unknown]

NARRATIVE: CASE EVENT DATE: 20220606
